FAERS Safety Report 7491921-4 (Version None)
Quarter: 2011Q2

REPORT INFORMATION
  Report Type: 
  Country: None (occurrence: None)
  Receive Date: 20110519
  Receipt Date: 20110511
  Transmission Date: 20111010
  Serious: Yes (Death)
  Sender: FDA-Public Use
  Company Number: NO-TEVA-281555ISR

PATIENT

DRUGS (5)
  1. ZOLMITRIPTAN [Suspect]
     Route: 064
  2. METOCLOPRAMIDE [Suspect]
     Route: 064
  3. AMITRIPTYLINE HCL [Suspect]
     Route: 064
  4. CANDESARTAN WORLD [Suspect]
     Dosage: UNK
     Route: 064
  5. PRAMIPEXOLE DIHYDROCHLORIDE [Suspect]
     Route: 064

REACTIONS (2)
  - CONGENITAL ANOMALY [None]
  - OLIGOHYDRAMNIOS [None]
